FAERS Safety Report 17336040 (Version 2)
Quarter: 2020Q1

REPORT INFORMATION
  Report Type: Spontaneous
  Country: US (occurrence: US)
  Receive Date: 20200128
  Receipt Date: 20200221
  Transmission Date: 20200409
  Serious: No
  Sender: FDA-Public Use
  Company Number: US-009507513-2001USA009373

PATIENT
  Age: 84 Year
  Sex: Male

DRUGS (2)
  1. ASMANEX [Suspect]
     Active Substance: MOMETASONE FUROATE
     Dosage: 2 DOSAGE FORM, EVERY MORNING
     Dates: start: 20200114
  2. ASMANEX [Suspect]
     Active Substance: MOMETASONE FUROATE
     Dosage: UNK
     Dates: start: 2019

REACTIONS (5)
  - Poor quality device used [Unknown]
  - Product quality issue [Unknown]
  - Product dose omission [Unknown]
  - No adverse event [Unknown]
  - Product lot number issue [Unknown]

NARRATIVE: CASE EVENT DATE: 20200124
